FAERS Safety Report 6239323-2 (Version None)
Quarter: 2009Q2

REPORT INFORMATION
  Report Type: 
  Country: None (occurrence: None)
  Receive Date: 20090622
  Receipt Date: 20090618
  Transmission Date: 20091009
  Serious: Yes (Death, Hospitalization)
  Sender: FDA-Public Use
  Company Number: PHHY2009MX22991

PATIENT
  Sex: Male

DRUGS (3)
  1. STALEVO 100 [Suspect]
     Indication: PARKINSON'S DISEASE
     Dosage: 4 TABLETS PER DAY
     Route: 048
     Dates: start: 20061201
  2. PROPAFENONE HCL [Concomitant]
     Dosage: 150 MG, UNK
  3. CLONAZEPAM [Concomitant]

REACTIONS (4)
  - EATING DISORDER [None]
  - PARALYSIS [None]
  - PNEUMONIA [None]
  - RESPIRATORY ARREST [None]
